FAERS Safety Report 14351571 (Version 1)
Quarter: 2018Q1

REPORT INFORMATION
  Report Type: Spontaneous
  Country: KR (occurrence: KR)
  Receive Date: 20180104
  Receipt Date: 20180104
  Transmission Date: 20180509
  Serious: Yes (Hospitalization)
  Sender: FDA-Public Use
  Company Number: KR-ALLERGAN-1774404US

PATIENT
  Sex: Female

DRUGS (11)
  1. ATIVAN [Concomitant]
     Active Substance: LORAZEPAM
     Indication: PRODUCT USED FOR UNKNOWN INDICATION
     Route: 065
  2. ZOLPIRAM [Suspect]
     Active Substance: ZOLPIDEM TARTRATE
     Indication: SLEEP DISORDER
     Dosage: LESS THAN HALF TABLET
     Route: 048
  3. GANATON [Concomitant]
     Active Substance: ITOPRIDE
     Indication: ENDOMETRIAL CANCER
  4. ESCITALOPRAM OXALATE - BP [Suspect]
     Active Substance: ESCITALOPRAM OXALATE
     Indication: MAJOR DEPRESSION
     Dosage: 5 MG, QD
     Route: 065
     Dates: start: 20171201
  5. BEARSE [Concomitant]
     Indication: CANCER SURGERY
     Route: 065
  6. BEARSE [Concomitant]
     Indication: ENDOMETRIAL CANCER
  7. XANAX [Concomitant]
     Active Substance: ALPRAZOLAM
     Indication: SLEEP DISORDER
     Route: 065
  8. TRESTAN CAP (CYANOCOBALAMIN) [Suspect]
     Active Substance: CYANOCOBALAMIN
     Indication: PRODUCT USED FOR UNKNOWN INDICATION
     Route: 065
  9. GANATON [Concomitant]
     Active Substance: ITOPRIDE
     Indication: CANCER SURGERY
     Route: 065
  10. TYLENOL [Suspect]
     Active Substance: ACETAMINOPHEN
     Indication: PRODUCT USED FOR UNKNOWN INDICATION
     Route: 065
  11. GANATON [Concomitant]
     Active Substance: ITOPRIDE
     Indication: PROPHYLAXIS OF NAUSEA AND VOMITING

REACTIONS (9)
  - Sedation [Recovered/Resolved]
  - Adverse event [Unknown]
  - Drug ineffective [Unknown]
  - Burning sensation [Unknown]
  - Nausea [Not Recovered/Not Resolved]
  - Pain [Recovered/Resolved]
  - Paraesthesia [Unknown]
  - Drug effect faster than expected [Unknown]
  - Decreased appetite [Not Recovered/Not Resolved]
